FAERS Safety Report 14730118 (Version 5)
Quarter: 2018Q3

REPORT INFORMATION
  Report Type: Spontaneous
  Country: CA (occurrence: CA)
  Receive Date: 20180406
  Receipt Date: 20180925
  Transmission Date: 20181010
  Serious: Yes (Other)
  Sender: FDA-Public Use
  Company Number: CA-CELLTRION INC.-2018CA018489

PATIENT

DRUGS (5)
  1. INFLECTRA [Suspect]
     Active Substance: INFLIXIMAB-DYYB
     Dosage: 5 MG/KG , EVERY 0, 2,6 WEEKS, THEN EVERY 8 WEEKS
     Route: 042
     Dates: start: 20180911
  2. INFLECTRA [Suspect]
     Active Substance: INFLIXIMAB-DYYB
     Dosage: 5 MG/KG, EVERY 0, 2,6 WEEKS, THEN EVERY 8 WEEKS
     Route: 042
     Dates: start: 20180717
  3. SALOFALK                           /00000301/ [Concomitant]
     Active Substance: MESALAMINE
  4. INFLECTRA [Suspect]
     Active Substance: INFLIXIMAB-DYYB
     Dosage: 5 MG/KG , EVERY 0, 2,6 WEEKS, THEN EVERY 8 WEEKS
     Route: 042
     Dates: start: 20180213
  5. INFLECTRA [Suspect]
     Active Substance: INFLIXIMAB-DYYB
     Indication: CROHN^S DISEASE
     Dosage: 480 MG, EVERY 0, 2,6 WEEKS, THEN EVERY 8 WEEKS
     Route: 042
     Dates: start: 20180213

REACTIONS (5)
  - Condition aggravated [Unknown]
  - Nasal polyps [Unknown]
  - Drug effect incomplete [Recovered/Resolved]
  - Blood pressure fluctuation [Unknown]
  - Lacrimation increased [Unknown]

NARRATIVE: CASE EVENT DATE: 201802
